FAERS Safety Report 8971679 (Version 2)
Quarter: 2012Q4

REPORT INFORMATION
  Report Type: 
  Country: JP (occurrence: JP)
  Receive Date: 20121217
  Receipt Date: 20121219
  Transmission Date: 20130627
  Serious: Yes (Other)
  Sender: FDA-Public Use
  Company Number: JP-ELI_LILLY_AND_COMPANY-JP201212001509

PATIENT
  Age: 84 Year
  Sex: Female
  Weight: 41 kg

DRUGS (9)
  1. FORTEO [Suspect]
     Indication: OSTEOPOROSIS
     Dosage: 20 ug, qd
     Route: 058
     Dates: start: 20121201, end: 20121203
  2. FORTEO [Suspect]
     Dosage: 20 ug, qd
     Route: 058
     Dates: start: 20121205, end: 20121205
  3. GLAKAY [Concomitant]
     Dosage: 2 DF, qd
     Route: 048
  4. ASPARA-CA [Concomitant]
     Dosage: 200 mg, qd
     Route: 048
  5. ASPARA K [Concomitant]
     Dosage: 300 mg, qd
     Route: 048
  6. PLETAAL [Concomitant]
     Dosage: 100 mg, qd
     Route: 048
  7. LASIX [Concomitant]
     Indication: ARRHYTHMIA PROPHYLAXIS
     Dosage: 20 mg, qd
     Route: 048
  8. TAKEPRON [Concomitant]
     Indication: GASTROOESOPHAGEAL REFLUX PROPHYLAXIS
     Dosage: 4 mg, qd
     Route: 048
  9. BLOPRESS [Concomitant]
     Dosage: 4 mg, qd
     Route: 048

REACTIONS (5)
  - Loss of consciousness [Recovered/Resolved]
  - Hypotension [Recovered/Resolved]
  - Nausea [Recovering/Resolving]
  - Feeling abnormal [Recovered/Resolved]
  - Hypotension [Recovered/Resolved]
